FAERS Safety Report 9893701 (Version 1)
Quarter: 2014Q1

REPORT INFORMATION
  Report Type: Spontaneous
  Country: US (occurrence: US)
  Receive Date: 20140213
  Receipt Date: 20140213
  Transmission Date: 20141002
  Serious: Yes (Hospitalization)
  Sender: FDA-Public Use
  Company Number: US-B.I. PHARMACEUTICALS,INC./RIDGEFIELD-2014-BI-05194BP

PATIENT
  Age: 66 Year
  Sex: Female
  Weight: 61 kg

DRUGS (8)
  1. AGGRENOX [Suspect]
     Indication: CEREBROVASCULAR ACCIDENT PROPHYLAXIS
     Dosage: STRENGTH: 25MG/200MG; DAILY DOSE: 50MG/200MG
     Route: 048
     Dates: start: 2001
  2. FENTANYL [Concomitant]
     Indication: PAIN
     Dosage: 16.6667 MCG
     Route: 061
  3. DICLOFENAC [Concomitant]
     Indication: ARTHRALGIA
     Dosage: 75 MG
     Route: 048
  4. ENALAPARIL [Concomitant]
     Indication: HYPERTENSION
     Dosage: 20 MG
     Route: 048
  5. ATORVASTATIN [Concomitant]
     Indication: BLOOD CHOLESTEROL INCREASED
     Dosage: 80 MG
     Route: 048
  6. LANSOPRAZOLE [Concomitant]
     Indication: GASTROOESOPHAGEAL REFLUX DISEASE
     Dosage: 30 MG
     Route: 048
  7. DULOXETINE [Concomitant]
     Indication: NEURALGIA
     Dosage: 120 MG
     Route: 048
  8. DULOXETINE [Concomitant]
     Indication: CEREBROVASCULAR ACCIDENT

REACTIONS (1)
  - Invasive ductal breast carcinoma [Recovered/Resolved]
